FAERS Safety Report 21096447 (Version 3)
Quarter: 2022Q3

REPORT INFORMATION
  Report Type: Spontaneous
  Country: US (occurrence: US)
  Receive Date: 20220718
  Receipt Date: 20220928
  Transmission Date: 20221027
  Serious: Yes (Hospitalization)
  Sender: FDA-Public Use
  Company Number: US-BRISTOL-MYERS SQUIBB COMPANY-2022-071044

PATIENT
  Age: 73 Year
  Sex: Female

DRUGS (1)
  1. POMALYST [Suspect]
     Active Substance: POMALIDOMIDE
     Indication: Plasma cell myeloma recurrent
     Dosage: 1 CAPSULE BY MOUTH EVERYDAY WITH OR WITHOUT FOOD FOR 21 DAYS AND THEN 7 DAYS OFF, THEN REPEAT CYCLE
     Route: 048
     Dates: start: 20211026

REACTIONS (4)
  - Dehydration [Unknown]
  - Full blood count decreased [Unknown]
  - Hypotension [Unknown]
  - COVID-19 [Recovered/Resolved]

NARRATIVE: CASE EVENT DATE: 20220908
